FAERS Safety Report 24782273 (Version 1)
Quarter: 2024Q4

REPORT INFORMATION
  Report Type: Spontaneous
  Country: US (occurrence: US)
  Receive Date: 20241227
  Receipt Date: 20241227
  Transmission Date: 20250115
  Serious: No
  Sender: EPIC PHARM
  Company Number: US-EPICPHARMA-US-2024EPCSPO01595

PATIENT
  Sex: Male

DRUGS (1)
  1. DEXTROAMPHETAMINE SACCHARATE, AMPHETAMINE ASPARTATE, DEXTROAMPHETAMINE [Suspect]
     Active Substance: AMPHETAMINE ASPARTATE\AMPHETAMINE SULFATE\DEXTROAMPHETAMINE SACCHARATE\DEXTROAMPHETAMINE SULFATE
     Indication: Product used for unknown indication
     Route: 065

REACTIONS (9)
  - Brain fog [Unknown]
  - Peripheral coldness [Unknown]
  - Malaise [Unknown]
  - Dysgeusia [Unknown]
  - Therapy non-responder [Unknown]
  - Product availability issue [Unknown]
  - Product substitution issue [Unknown]
  - Product taste abnormal [Unknown]
  - Product after taste [Unknown]
